FAERS Safety Report 8785480 (Version 1)
Quarter: 2012Q4

REPORT INFORMATION
  Report Type: Report from Study
  Country: US (occurrence: US)
  Receive Date: 20120914
  Receipt Date: 20121004
  Transmission Date: 20130627
  Serious: No
  Sender: FDA-Public Use
  Company Number: US-VERTEX PHARMACEUTICAL INC.-2012-019902

PATIENT
  Age: 58 None
  Sex: Male
  Weight: 59 kg

DRUGS (5)
  1. VX-950 [Suspect]
     Indication: HEPATITIS C
     Dosage: 750 mg, tid
     Route: 048
     Dates: start: 2012, end: 201209
  2. RIBAVIRIN [Concomitant]
     Indication: HEPATITIS C
     Dosage: 400 mg, bid
     Route: 048
     Dates: start: 2012
  3. PEGASYS [Concomitant]
     Indication: HEPATITIS C
     Dosage: 180 ?g, UNK
     Route: 058
     Dates: start: 2012
  4. PRILOSEC                           /00661201/ [Concomitant]
     Dosage: 20 mg, UNK
  5. ETODOLAC [Concomitant]
     Dosage: 200 mg, qd

REACTIONS (6)
  - Bone density decreased [Unknown]
  - Abdominal pain upper [Unknown]
  - Pain [Unknown]
  - Adverse event [Unknown]
  - Fatigue [Unknown]
  - Nausea [Unknown]
